FAERS Safety Report 6619768-9 (Version None)
Quarter: 2010Q1

REPORT INFORMATION
  Report Type: 
  Country: None (occurrence: None)
  Receive Date: 20100309
  Receipt Date: 20100304
  Transmission Date: 20100710
  Serious: Yes (Death, Hospitalization)
  Sender: FDA-Public Use
  Company Number: JP-BAYER-200913853BYL

PATIENT
  Age: 71 Year
  Sex: Female
  Weight: 49 kg

DRUGS (15)
  1. NEXAVAR [Suspect]
     Indication: HEPATIC NEOPLASM MALIGNANT
     Dosage: UNIT DOSE: 200 MG
     Route: 048
     Dates: start: 20090706, end: 20090831
  2. NEXAVAR [Suspect]
     Dosage: UNIT DOSE: 200 MG
     Route: 048
     Dates: start: 20090916, end: 20091008
  3. AMLODIPINE [Concomitant]
     Dosage: FROM BEFORE ADMINISTRATION
     Route: 048
  4. NU-LOTAN [Concomitant]
     Dosage: FROM BEFORE ADMINISTRATION
     Route: 048
  5. EVISTA [Concomitant]
     Dosage: FROM BEFORE ADMINISTRATION
     Route: 048
  6. ASPIRIN [Concomitant]
     Dosage: FROM BEFORE ADMINISTRATION
     Route: 048
  7. PARIET [Concomitant]
     Dosage: FROM BEFORE ADMINISTRATION
     Route: 048
  8. MOBIC [Concomitant]
     Dosage: FROM BEFORE ADMINISTRATION
     Route: 048
  9. MAGMITT [Concomitant]
     Dosage: FROM BEFORE ADMINISTRATION
     Route: 048
  10. GASMOTIN [Concomitant]
     Dosage: FROM BEFORE ADMINISTRATION
     Route: 048
  11. KANAMYCIN [Concomitant]
     Dosage: FROM BEFORE ADMINISTRATION
     Route: 048
  12. GLAKAY [Concomitant]
     Dosage: FROM BEFORE ADMINISTRATION
     Route: 048
  13. PURSENNID [Concomitant]
     Dosage: FROM BEFORE ADMINISTRATION
     Route: 048
  14. BRANUTE [Concomitant]
     Dosage: FROM BEFORE ADMINISTRATION
     Route: 048
  15. OXYCONTIN [Concomitant]
     Dosage: FROM BEFORE ADMINISTRATION
     Route: 048

REACTIONS (2)
  - CHOLANGITIS SUPPURATIVE [None]
  - DEPRESSION [None]
